FAERS Safety Report 6616643-0 (Version None)
Quarter: 2010Q1

REPORT INFORMATION
  Report Type: 
  Country: None (occurrence: None)
  Receive Date: 20100305
  Receipt Date: 20100223
  Transmission Date: 20100710
  Serious: Yes (Hospitalization, Other)
  Sender: FDA-Public Use
  Company Number: BR-ABBOTT-09P-020-0614847-00

PATIENT
  Sex: Female
  Weight: 56 kg

DRUGS (4)
  1. HUMIRA [Suspect]
     Indication: RHEUMATOID ARTHRITIS
     Route: 058
     Dates: start: 20070101, end: 20091118
  2. HUMIRA [Suspect]
     Dates: start: 20091120
  3. PREDNISONE [Concomitant]
     Indication: ANTIINFLAMMATORY THERAPY
     Route: 048
     Dates: start: 19810101
  4. TRAMADOL HYDROCHLORIDE [Concomitant]
     Indication: PAIN
     Route: 048
     Dates: start: 20090301

REACTIONS (6)
  - ARTHRITIS [None]
  - CYST [None]
  - HAND DEFORMITY [None]
  - HYPERKERATOSIS [None]
  - INFLAMMATION [None]
  - LIMB DEFORMITY [None]
